FAERS Safety Report 13919423 (Version 1)
Quarter: 2017Q3

REPORT INFORMATION
  Report Type: Spontaneous
  Country: US (occurrence: US)
  Receive Date: 20170830
  Receipt Date: 20170830
  Transmission Date: 20171127
  Serious: No
  Sender: FDA-Public Use
  Company Number: US-AUROBINDO-AUR-APU-2017-31688

PATIENT
  Age: 89 Year
  Sex: Female

DRUGS (1)
  1. LEVOFLOXACIN IN 5% DEXTROSE INJECTION [Suspect]
     Active Substance: LEVOFLOXACIN
     Indication: PRODUCT USED FOR UNKNOWN INDICATION
     Dosage: 750 MG IV BAG
     Route: 042
     Dates: start: 20170401, end: 20170403

REACTIONS (2)
  - Infusion site erythema [Unknown]
  - Infusion site pruritus [Unknown]

NARRATIVE: CASE EVENT DATE: 20170403
